FAERS Safety Report 8157230-5 (Version None)
Quarter: 2012Q1

REPORT INFORMATION
  Report Type: 
  Country: None (occurrence: None)
  Receive Date: 20120222
  Receipt Date: 20120222
  Transmission Date: 20120608
  Serious: Yes (Other)
  Sender: FDA-Public Use
  Company Number: None

PATIENT
  Sex: Female
  Weight: 154.22 kg

DRUGS (7)
  1. CYMBALTA [Suspect]
     Indication: FIBROMYALGIA
     Dosage: 60.0 MG
     Route: 048
     Dates: start: 20090701, end: 20120221
  2. RITALIN [Concomitant]
  3. AMARYL [Concomitant]
  4. LOMOTIL [Concomitant]
  5. ACTOS [Concomitant]
  6. THYROID TAB [Concomitant]
  7. TRILEPTAL [Concomitant]

REACTIONS (5)
  - VOMITING [None]
  - URINARY INCONTINENCE [None]
  - DEHYDRATION [None]
  - HYPERHIDROSIS [None]
  - DISORIENTATION [None]
